FAERS Safety Report 9042368 (Version 1)
Quarter: 2013Q1

REPORT INFORMATION
  Report Type: Report from Study
  Country: US (occurrence: US)
  Receive Date: 20130129
  Receipt Date: 20130129
  Transmission Date: 20140127
  Serious: Yes (Other)
  Sender: FDA-Public Use
  Company Number: US-ABBOTT-12P-163-0909073-00

PATIENT
  Age: 43 Year
  Sex: Female

DRUGS (15)
  1. HUMIRA 40 MG/0.8 ML PEN [Suspect]
     Indication: RHEUMATOID ARTHRITIS
     Dosage: EVERY OTHER WEEK, INTERRUPTED
     Dates: end: 20111101
  2. HUMIRA 40 MG/0.8 ML PEN [Suspect]
     Dates: start: 20120222
  3. METHOTREXATE [Concomitant]
     Indication: PRODUCT USED FOR UNKNOWN INDICATION
     Route: 050
  4. FOLIC ACID [Concomitant]
     Indication: PRODUCT USED FOR UNKNOWN INDICATION
     Dosage: DAILY 1 MG
  5. ZOLTIDEN [Concomitant]
     Indication: INSOMNIA
  6. ALPRAZOLAM [Concomitant]
     Indication: PRODUCT USED FOR UNKNOWN INDICATION
     Dosage: AT BEDTIME
  7. OMEPRAZOLE [Concomitant]
     Indication: BARRETT^S OESOPHAGUS
  8. OMEPRAZOLE [Concomitant]
     Indication: GASTROOESOPHAGEAL REFLUX DISEASE
  9. PROMETHAZINE [Concomitant]
     Indication: NAUSEA
  10. HYDROCODONE W/APAP [Concomitant]
     Indication: PAIN
  11. FLUOXETINE [Concomitant]
     Indication: DEPRESSION
  12. CYCLOBENZAPRINE [Concomitant]
     Indication: PRODUCT USED FOR UNKNOWN INDICATION
  13. GLUCOSAMINE [Concomitant]
     Indication: ARTHROPATHY
  14. PROVENTIL [Concomitant]
     Indication: PRODUCT USED FOR UNKNOWN INDICATION
  15. SYMBICORT [Concomitant]
     Indication: PRODUCT USED FOR UNKNOWN INDICATION

REACTIONS (13)
  - Road traffic accident [Unknown]
  - Upper limb fracture [Unknown]
  - Arthritis [Unknown]
  - Post-traumatic neck syndrome [Unknown]
  - Back pain [Unknown]
  - Arthralgia [Unknown]
  - Oedema peripheral [Not Recovered/Not Resolved]
  - Glossodynia [Not Recovered/Not Resolved]
  - Tongue disorder [Not Recovered/Not Resolved]
  - Headache [Not Recovered/Not Resolved]
  - Diarrhoea [Not Recovered/Not Resolved]
  - Neck pain [Not Recovered/Not Resolved]
  - Oral mucosal erythema [Not Recovered/Not Resolved]
